FAERS Safety Report 4928641-3 (Version None)
Quarter: 2006Q1

REPORT INFORMATION
  Report Type: 
  Country: None (occurrence: None)
  Receive Date: 20060227
  Receipt Date: 20060227
  Transmission Date: 20060701
  Serious: No
  Sender: FDA-Public Use
  Company Number: None

PATIENT
  Age: 73 Year
  Sex: Female
  Weight: 58.0604 kg

DRUGS (1)
  1. PLAVIX [Suspect]
     Indication: POOR PERIPHERAL CIRCULATION
     Dosage: 75 MG  1/DAY
     Dates: start: 20020919, end: 20030508

REACTIONS (3)
  - EYE HAEMORRHAGE [None]
  - MACULOPATHY [None]
  - VISUAL DISTURBANCE [None]
